FAERS Safety Report 9239339 (Version 1)
Quarter: 2013Q2

REPORT INFORMATION
  Report Type: Spontaneous
  Country: US (occurrence: US)
  Receive Date: 20130418
  Receipt Date: 20130418
  Transmission Date: 20140414
  Serious: Yes (Other)
  Sender: FDA-Public Use
  Company Number: CHPA2013US006455

PATIENT
  Age: 84 Year
  Sex: Male

DRUGS (4)
  1. GAS-X ULTRA STRENGTH [Suspect]
     Indication: DYSPEPSIA
     Dosage: UNK, PRN
     Route: 048
  2. GAS-X ULTRA STRENGTH [Suspect]
     Indication: DYSPNOEA
  3. GAS-X REGULAR STRENGTH [Suspect]
     Indication: DYSPEPSIA
     Dosage: UNK, PRN
     Route: 048
  4. GAS-X REGULAR STRENGTH [Suspect]
     Indication: DYSPNOEA

REACTIONS (13)
  - Heart rate irregular [Not Recovered/Not Resolved]
  - Cardiac disorder [Not Recovered/Not Resolved]
  - Dyspnoea [Recovered/Resolved]
  - Dyspepsia [Not Recovered/Not Resolved]
  - Condition aggravated [Not Recovered/Not Resolved]
  - Feeling abnormal [Recovered/Resolved]
  - Constipation [Not Recovered/Not Resolved]
  - Diarrhoea [Not Recovered/Not Resolved]
  - Hernia [Recovered/Resolved]
  - Cough [Not Recovered/Not Resolved]
  - Pulmonary congestion [Recovered/Resolved]
  - Sinusitis [Recovered/Resolved]
  - Off label use [Unknown]
